FAERS Safety Report 13911046 (Version 1)
Quarter: 2017Q3

REPORT INFORMATION
  Report Type: Spontaneous
  Country: TR (occurrence: TR)
  Receive Date: 20170828
  Receipt Date: 20170828
  Transmission Date: 20171127
  Serious: Yes (Other)
  Sender: FDA-Public Use
  Company Number: TR-APOTEX-2017AP017008

PATIENT
  Age: 75 Year
  Sex: Female

DRUGS (4)
  1. RISPERIDONE. [Suspect]
     Active Substance: RISPERIDONE
     Indication: CHARLES BONNET SYNDROME
     Dosage: UNK UNK, QD
     Route: 065
  2. GABAPENTIN. [Suspect]
     Active Substance: GABAPENTIN
     Indication: CHARLES BONNET SYNDROME
     Route: 065
  3. AS-KUTEYAP [Suspect]
     Active Substance: QUETIAPINE
     Indication: CHARLES BONNET SYNDROME
     Dosage: 25 MG, QD
     Route: 065
  4. AS-KUTEYAP [Suspect]
     Active Substance: QUETIAPINE
     Dosage: 50 MG, QD
     Route: 065

REACTIONS (2)
  - Drug ineffective [Unknown]
  - Parkinsonism [Unknown]
